FAERS Safety Report 5140287-3 (Version None)
Quarter: 2006Q4

REPORT INFORMATION
  Report Type: 
  Country: None (occurrence: None)
  Receive Date: 20061031
  Receipt Date: 20060601
  Transmission Date: 20070319
  Serious: Yes (Life-Threatening, Hospitalization)
  Sender: FDA-Public Use
  Company Number: ES-GLAXOSMITHKLINE-B0426085A

PATIENT
  Sex: Male
  Weight: 2.6 kg

DRUGS (4)
  1. PAROXETINE HCL [Suspect]
     Dosage: 20MG PER DAY
  2. LORAZEPAM [Suspect]
     Dosage: .25MG PER DAY
  3. RITODRINE [Suspect]
     Indication: DRUG USE FOR UNKNOWN INDICATION
  4. NIFEDIPINE [Suspect]
     Indication: DRUG USE FOR UNKNOWN INDICATION

REACTIONS (16)
  - ASTHENIA [None]
  - BODY TEMPERATURE FLUCTUATION [None]
  - CHILLS [None]
  - CHOREA [None]
  - CRYING [None]
  - DRUG EXPOSURE DURING PREGNANCY [None]
  - DRUG WITHDRAWAL SYNDROME NEONATAL [None]
  - EATING DISORDER [None]
  - FEEDING DISORDER OF INFANCY OR EARLY CHILDHOOD [None]
  - HYPERREFLEXIA [None]
  - HYPERTONIA [None]
  - HYPOVENTILATION [None]
  - IRRITABILITY [None]
  - PREMATURE BABY [None]
  - RESPIRATORY DISTRESS [None]
  - TREMOR [None]
